FAERS Safety Report 17865706 (Version 4)
Quarter: 2020Q3

REPORT INFORMATION
  Report Type: Spontaneous
  Country: IT (occurrence: IT)
  Receive Date: 20200605
  Receipt Date: 20200710
  Transmission Date: 20201103
  Serious: Yes (Life-Threatening, Hospitalization, Disabling, Other)
  Sender: FDA-Public Use
  Company Number: IT-PFIZER INC-2020219931

PATIENT
  Age: 57 Year
  Sex: Female
  Weight: 60 kg

DRUGS (23)
  1. PREDNISONE. [Suspect]
     Active Substance: PREDNISONE
     Dosage: 40 MG/M2, CYCLIC  ON DAYS 1 AND 7
     Dates: start: 201210, end: 201210
  2. GEMCITABINE HYDROCHLORIDE. [Suspect]
     Active Substance: GEMCITABINE HYDROCHLORIDE
     Indication: HODGKIN^S DISEASE
     Dosage: 800 MG/M2, CYCLIC ON DAYS 1 AND 4
     Dates: start: 201109
  3. DOXORUBICIN HCL [Suspect]
     Active Substance: DOXORUBICIN HYDROCHLORIDE
     Dosage: 25 MG/M2, CYCLIC ON DAY 1
     Dates: start: 201210, end: 201210
  4. CYCLOPHOSPHAMIDE. [Suspect]
     Active Substance: CYCLOPHOSPHAMIDE
     Dosage: 650 MG/M2, CYCLIC (ON DAY 1)
     Dates: start: 201210, end: 201210
  5. VINCRISTINE SULFATE. [Suspect]
     Active Substance: VINCRISTINE SULFATE
     Dosage: 1.4 MG/M2, CYCLIC ON DAY 8
     Dates: start: 201210, end: 201210
  6. BLEOMYCIN [Suspect]
     Active Substance: BLEOMYCIN SULFATE
     Dosage: 10 IU/M^2 ON DAY 8
     Dates: start: 201210, end: 201210
  7. DOXORUBICIN HCL [Suspect]
     Active Substance: DOXORUBICIN HYDROCHLORIDE
     Indication: HODGKIN^S DISEASE
     Dosage: 25 MG/M2, CYCLIC ON DAYS 1 AND 15
     Dates: start: 20100601, end: 20101206
  8. DOXORUBICIN HCL [Suspect]
     Active Substance: DOXORUBICIN HYDROCHLORIDE
     Dosage: UNK, CYCLIC
     Dates: start: 201207, end: 201210
  9. ETOPOSIDE. [Suspect]
     Active Substance: ETOPOSIDE
     Indication: HODGKIN^S DISEASE
     Dosage: UNK, CYCLIC
     Dates: start: 201207, end: 201210
  10. PROCARBAZINE [Suspect]
     Active Substance: PROCARBAZINE
     Dosage: 100 MG/M2, CYCLIC ON DAYS 1 AND 7
     Dates: start: 201210, end: 201210
  11. CYCLOPHOSPHAMIDE. [Suspect]
     Active Substance: CYCLOPHOSPHAMIDE
     Indication: HODGKIN^S DISEASE
     Dosage: UNK, CYCLIC
     Dates: start: 201207, end: 201210
  12. ETOPOSIDE. [Suspect]
     Active Substance: ETOPOSIDE
     Dosage: 100 MG/M2, CYCLIC ON DAYS 1 AND 3
     Dates: start: 201210, end: 201210
  13. PREDNISONE. [Suspect]
     Active Substance: PREDNISONE
     Indication: HODGKIN^S DISEASE
     Dosage: UNK, CYCLIC
     Dates: start: 201207, end: 201210
  14. DACARBAZINE. [Suspect]
     Active Substance: DACARBAZINE
     Indication: HODGKIN^S DISEASE
     Dosage: 375 MG/M2, CYCLIC ON DAYS 1 AND 15
     Dates: start: 20100601, end: 20101206
  15. BLEOMYCIN [Suspect]
     Active Substance: BLEOMYCIN SULFATE
     Indication: HODGKIN^S DISEASE
     Dosage: 10 IU/M^2 ON DAYS 1 AND 15
     Dates: start: 20100601, end: 20101206
  16. BLEOMYCIN [Suspect]
     Active Substance: BLEOMYCIN SULFATE
     Dosage: UNK, CYCLIC
     Dates: start: 201207, end: 201210
  17. VINCRISTINE SULFATE. [Suspect]
     Active Substance: VINCRISTINE SULFATE
     Indication: HODGKIN^S DISEASE
     Dosage: UNK, CYCLIC
     Dates: start: 201207, end: 201210
  18. VINORELBINE TARTRATE. [Suspect]
     Active Substance: VINORELBINE TARTRATE
     Indication: HODGKIN^S DISEASE
     Dosage: 20 MG/M2, CYCLIC ON DAY 1
     Dates: start: 201109
  19. VINBLASTINE [Suspect]
     Active Substance: VINBLASTINE
     Indication: HODGKIN^S DISEASE
     Dosage: 6 MG/M2, CYCLIC DAYS 1 AND 15
     Dates: start: 20100601, end: 20101206
  20. PROCARBAZINE [Suspect]
     Active Substance: PROCARBAZINE
     Indication: HODGKIN^S DISEASE
     Dosage: UNK, CYCLIC
     Dates: start: 201207, end: 201210
  21. IFOSFAMIDE. [Suspect]
     Active Substance: IFOSFAMIDE
     Indication: HODGKIN^S DISEASE
     Dosage: 2000 MG/M2, CYCLIC ON DAYS 1, 2, 3 AND 4
     Dates: start: 201109
  22. PREDNISONE. [Suspect]
     Active Substance: PREDNISONE
     Dosage: 100 MG, CYCLIC ON DAYS 1 TO 4
     Dates: start: 201109
  23. VINBLASTINE [Suspect]
     Active Substance: VINBLASTINE
     Dosage: DAYS 1 AND 15
     Dates: start: 20100601, end: 20101206

REACTIONS (4)
  - Progressive multifocal leukoencephalopathy [Not Recovered/Not Resolved]
  - Lymphopenia [Unknown]
  - Pancytopenia [Unknown]
  - JC virus infection [Unknown]

NARRATIVE: CASE EVENT DATE: 201210
